FAERS Safety Report 5278559-4 (Version None)
Quarter: 2007Q1

REPORT INFORMATION
  Report Type: 
  Country: None (occurrence: None)
  Receive Date: 20061213
  Receipt Date: 20050524
  Transmission Date: 20070707
  Serious: Yes (Hospitalization)
  Sender: FDA-Public Use
  Company Number: 2005UW08034

PATIENT
  Age: 84 Year
  Sex: Female

DRUGS (3)
  1. SEROQUEL [Suspect]
     Dosage: 25 MG PO
     Route: 048
  2. HALDOL [Concomitant]
  3. NO MATCH [Concomitant]

REACTIONS (3)
  - AKATHISIA [None]
  - PNEUMONIA [None]
  - TARDIVE DYSKINESIA [None]
